FAERS Safety Report 20668477 (Version 1)
Quarter: 2022Q2

REPORT INFORMATION
  Report Type: Spontaneous
  Country: US (occurrence: US)
  Receive Date: 20220404
  Receipt Date: 20220404
  Transmission Date: 20220721
  Serious: Yes (Other)
  Sender: FDA-Public Use
  Company Number: US-BEH-2022143682

PATIENT
  Sex: Female

DRUGS (1)
  1. HIZENTRA [Suspect]
     Active Substance: HUMAN IMMUNOGLOBULIN G
     Indication: Rheumatoid arthritis
     Dosage: 10 GRAM, QW
     Route: 058
     Dates: start: 20210430

REACTIONS (5)
  - Neoplasm [Unknown]
  - Weight fluctuation [Unknown]
  - Decreased appetite [Unknown]
  - No adverse event [Unknown]
  - Off label use [Unknown]
